FAERS Safety Report 8558080-8 (Version None)
Quarter: 2012Q3

REPORT INFORMATION
  Report Type: 
  Country: None (occurrence: None)
  Receive Date: 20120801
  Receipt Date: 20120727
  Transmission Date: 20120928
  Serious: Yes (Hospitalization)
  Sender: FDA-Public Use
  Company Number: US-BAYER-2012-044785

PATIENT
  Age: 72 Year
  Sex: Male
  Weight: 74.9 kg

DRUGS (25)
  1. NEXAVAR [Suspect]
     Dosage: 200 MG, BID
     Route: 048
     Dates: end: 20120523
  2. TYLENOL (CAPLET) [Concomitant]
     Dosage: 500 MG, TID
     Route: 048
  3. WARFARIN [Concomitant]
     Dosage: UNK
     Dates: end: 20120401
  4. BLOOD PRESSURE MEDICATION (NOS) [Concomitant]
     Indication: HYPERTENSION
     Dosage: UNK
     Dates: start: 20120401
  5. CENTRUM [Concomitant]
     Dosage: 1 DF, DAILY
     Route: 048
  6. NOVOLOG [Concomitant]
     Dosage: 8 U, WITH EACH MEAL
  7. LANTUS [Concomitant]
     Dosage: 30 U, BID AT BEDTIME
     Route: 058
  8. AMLODIPINE [Concomitant]
     Dosage: 10 MG, QD
     Route: 048
  9. NEXAVAR [Suspect]
     Indication: HEPATIC NEOPLASM MALIGNANT
     Dosage: 200 MG, BID
     Route: 048
     Dates: start: 20120420, end: 20120424
  10. NEXAVAR [Suspect]
     Dosage: 200 MG, BID
     Route: 048
     Dates: start: 20120525, end: 20120628
  11. METOPROLOL TARTRATE [Concomitant]
     Dosage: 50 MG, 2 TABLET EVERY MORNING
     Route: 048
  12. NITROGLYCERIN [Concomitant]
     Dosage: 0.4 MG, Q. 5 MINUTES
     Route: 060
  13. DILAUDID [Concomitant]
     Dosage: 2 MG, 1 TO 2 TABLETS BID, R.P.N.
     Route: 048
  14. CRESTOR [Concomitant]
     Dosage: 20 MG, QD AT BEDTIME
     Route: 048
  15. ANTINEOPLASTIC AGENTS [Concomitant]
     Indication: HEPATIC CANCER METASTATIC
     Dosage: UNK
     Dates: start: 20120401
  16. INSULIN [Concomitant]
     Indication: BLOOD GLUCOSE FLUCTUATION
     Dosage: UNK
     Dates: start: 20120401
  17. TRAMADOL HYDROCHLORIDE [Concomitant]
     Dosage: 50 MG, QID P.R.N.
  18. RANITIDINE [Concomitant]
     Dosage: 150 MG, QD
     Route: 048
  19. AMLODIPINE [Concomitant]
     Dosage: 5 MG, QD
     Route: 048
  20. LOVENOX [Concomitant]
     Dosage: 1 MG/KG, BID
     Route: 048
  21. METOPROLOL SUCCINATE [Concomitant]
     Dosage: 100 MG, REPORTEDLY: Q DAILY
     Route: 048
  22. PREDNISONE [Concomitant]
     Dosage: 20 MG, QD
     Route: 048
  23. ARTIFICIAL TEARS [ARTIFICIAL TEARS] [Concomitant]
     Dosage: 1 DRIP ONE EACH P.R.N.
  24. ASPIRIN [Concomitant]
     Dosage: 81 MG, EVERY MORNING
     Route: 048
  25. I.V. SOLUTIONS [Concomitant]
     Indication: BLOOD CREATININE INCREASED
     Route: 042

REACTIONS (9)
  - BLOOD CREATININE INCREASED [None]
  - PERICARDITIS [None]
  - RENAL IMPAIRMENT [None]
  - HEART RATE IRREGULAR [None]
  - RENAL FAILURE [None]
  - BLOOD PRESSURE INCREASED [None]
  - MUSCULOSKELETAL PAIN [None]
  - RENAL FAILURE ACUTE [None]
  - GOUT [None]
